FAERS Safety Report 11342424 (Version 3)
Quarter: 2015Q4

REPORT INFORMATION
  Report Type: Spontaneous
  Country: BR (occurrence: BR)
  Receive Date: 20150805
  Receipt Date: 20151006
  Transmission Date: 20160304
  Serious: Yes (Other)
  Sender: FDA-Public Use
  Company Number: PHHY2015BR091543

PATIENT
  Age: 80 Year
  Sex: Female
  Weight: 45 kg

DRUGS (3)
  1. OLANZAPINE. [Concomitant]
     Active Substance: OLANZAPINE
     Indication: SLEEP DISORDER
     Route: 065
     Dates: start: 20150716
  2. MIRTAZAPINE. [Suspect]
     Active Substance: MIRTAZAPINE
     Indication: DEPRESSION
     Dosage: 15 MG, QD
     Route: 048
     Dates: start: 20150709
  3. RIVOTRIL [Concomitant]
     Active Substance: CLONAZEPAM
     Indication: DEPRESSION
     Route: 065
     Dates: start: 201205

REACTIONS (6)
  - Panic disorder [Recovered/Resolved]
  - Delirium [Recovered/Resolved]
  - Sleep disorder [Recovered/Resolved]
  - Emotional distress [Recovered/Resolved]
  - Drug ineffective [Recovered/Resolved]
  - Agitation [Recovered/Resolved]

NARRATIVE: CASE EVENT DATE: 20150709
